FAERS Safety Report 10143990 (Version 1)
Quarter: 2014Q2

REPORT INFORMATION
  Report Type: Spontaneous
  Country: GB (occurrence: GB)
  Receive Date: 20140430
  Receipt Date: 20140430
  Transmission Date: 20141212
  Serious: Yes (Death)
  Sender: FDA-Public Use
  Company Number: GB-BRISTOL-MYERS SQUIBB COMPANY-20673802

PATIENT
  Age: 62 Year
  Sex: Female

DRUGS (2)
  1. BARACLUDE TABS 1.0 MG [Suspect]
  2. VIREAD [Concomitant]
     Dosage: DF TABLETS

REACTIONS (1)
  - Death [Fatal]
